FAERS Safety Report 4541658-6 (Version None)
Quarter: 2004Q4

REPORT INFORMATION
  Report Type: 
  Country: None (occurrence: None)
  Receive Date: 20041227
  Receipt Date: 20041210
  Transmission Date: 20050328
  Serious: Yes (Death)
  Sender: FDA-Public Use
  Company Number: 2004-00914

PATIENT
  Age: 75 Year
  Sex: Female

DRUGS (1)
  1. VELCADE [Suspect]

REACTIONS (2)
  - HERPES ZOSTER [None]
  - IMMUNOSUPPRESSION [None]
